FAERS Safety Report 9524857 (Version 1)
Quarter: 2013Q3

REPORT INFORMATION
  Report Type: Spontaneous
  Country: US (occurrence: None)
  Receive Date: 20130912
  Receipt Date: 20130912
  Transmission Date: 20140515
  Serious: No
  Sender: FDA-Public Use
  Company Number: None

PATIENT
  Age: 44 Year
  Sex: Female
  Weight: 73.48 kg

DRUGS (1)
  1. METHYLPHENIDATE [Suspect]
     Indication: ATTENTION DEFICIT/HYPERACTIVITY DISORDER
     Dosage: ONE PILL ONCE DAILY TAKEN BY MOUTH?SINCE GENERIC WAS AVAILABLE

REACTIONS (4)
  - Palpitations [None]
  - Flushing [None]
  - Overdose [None]
  - Product substitution issue [None]
